FAERS Safety Report 5869239-2 (Version None)
Quarter: 2008Q3

REPORT INFORMATION
  Report Type: 
  Country: None (occurrence: None)
  Receive Date: 20080903
  Receipt Date: 20080822
  Transmission Date: 20090109
  Serious: Yes (Other)
  Sender: FDA-Public Use
  Company Number: US-ELI_LILLY_AND_COMPANY-US200806003517

PATIENT
  Sex: Female

DRUGS (10)
  1. HUMALOG [Suspect]
     Dosage: 40 U, OTHER
  2. HUMALOG [Suspect]
     Dosage: 5 U, BEFORE BREAKFAST
     Dates: end: 20080109
  3. HUMALOG [Suspect]
     Dosage: 6 U, BEFORE LUCH
     Dates: end: 20080109
  4. HUMALOG [Suspect]
     Dosage: 6 U, BEFORE SUPPER
  5. HUMALOG [Suspect]
     Dosage: 6 U, BEFORE BREAKFAST
     Dates: start: 20080109
  6. HUMALOG [Suspect]
     Dosage: 7 U, BEFORE LUNCH
     Dates: start: 20080109
  7. SYMLIN [Concomitant]
     Dosage: 7.5 U, BEFORE MEALS
  8. LANTUS [Concomitant]
     Dosage: 10 U, BEFORE BREAKFAST
     Dates: end: 20080109
  9. LANTUS [Concomitant]
     Dosage: 11 U, BEFORE BREAKFAST
     Dates: start: 20080109
  10. LANTUS [Concomitant]
     Dosage: 9 U, EACH EVENING

REACTIONS (14)
  - ANXIETY [None]
  - BLOOD GLUCOSE INCREASED [None]
  - COLLAPSE OF LUNG [None]
  - CRYING [None]
  - FALL [None]
  - HYPERLIPIDAEMIA [None]
  - HYPERTENSION [None]
  - HYPOGLYCAEMIA [None]
  - NEUROPATHY PERIPHERAL [None]
  - NONSPECIFIC REACTION [None]
  - RETINOPATHY [None]
  - RIB FRACTURE [None]
  - STRESS [None]
  - WEIGHT DECREASED [None]
